FAERS Safety Report 9005202 (Version 1)
Quarter: 2013Q1

REPORT INFORMATION
  Report Type: Spontaneous
  Country: US (occurrence: None)
  Receive Date: 20130107
  Receipt Date: 20130107
  Transmission Date: 20140127
  Serious: No
  Sender: FDA-Public Use
  Company Number: None

PATIENT
  Age: 58 Year
  Sex: Female
  Weight: 46.72 kg

DRUGS (1)
  1. ESCITALOPRAM [Suspect]
     Indication: ANXIETY

REACTIONS (2)
  - Anxiety [None]
  - Tremor [None]
